FAERS Safety Report 18383725 (Version 1)
Quarter: 2020Q4

REPORT INFORMATION
  Report Type: Spontaneous
  Country: FR (occurrence: FR)
  Receive Date: 20201014
  Receipt Date: 20201014
  Transmission Date: 20210114
  Serious: Yes (Life-Threatening, Other)
  Sender: FDA-Public Use
  Company Number: FR-MYLANLABS-2020M1086187

PATIENT
  Age: 47 Year
  Sex: Female
  Weight: 70 kg

DRUGS (5)
  1. CAFFEINE W/IBUPROFEN [Suspect]
     Active Substance: CAFFEINE\IBUPROFEN
     Indication: POISONING DELIBERATE
     Dosage: 7 DOSAGE FORM, TOTAL
     Route: 048
     Dates: start: 20200509, end: 20200509
  2. MIANSERIN [Suspect]
     Active Substance: MIANSERIN
     Indication: POISONING DELIBERATE
     Dosage: 900 MILLIGRAM, TOTAL
     Route: 048
     Dates: start: 20200509, end: 20200509
  3. PARACETAMOL [Suspect]
     Active Substance: ACETAMINOPHEN
     Indication: POISONING DELIBERATE
     Dosage: 64 GRAM, TOTAL
     Route: 048
     Dates: start: 20200509, end: 20200509
  4. LORMETAZEPAM [Suspect]
     Active Substance: LORMETAZEPAM
     Indication: POISONING DELIBERATE
     Dosage: 28 DOSAGE FORM, TOTAL
     Route: 048
     Dates: start: 20200509, end: 20200509
  5. SERESTA [Suspect]
     Active Substance: OXAZEPAM
     Indication: PRODUCT USED FOR UNKNOWN INDICATION
     Dosage: 120 DOSAGE FORM, TOTAL
     Route: 048
     Dates: start: 20200509, end: 20200509

REACTIONS (5)
  - Hepatitis fulminant [Recovered/Resolved with Sequelae]
  - Overdose [Unknown]
  - Altered state of consciousness [Recovered/Resolved]
  - Multiple organ dysfunction syndrome [Recovered/Resolved]
  - Poisoning deliberate [Unknown]

NARRATIVE: CASE EVENT DATE: 20200509
